FAERS Safety Report 14071691 (Version 1)
Quarter: 2017Q4

REPORT INFORMATION
  Report Type: Spontaneous
  Country: US (occurrence: US)
  Receive Date: 20171011
  Receipt Date: 20171011
  Transmission Date: 20180321
  Serious: Yes (Other)
  Sender: FDA-Public Use
  Company Number: US-PFIZER INC-2017434900

PATIENT
  Age: 74 Year
  Sex: Female

DRUGS (2)
  1. IBRANCE [Suspect]
     Active Substance: PALBOCICLIB
     Dosage: 75 MG, CYCLIC (1 PO DAILY X 21 DAYS AND OFF FOR 7 DAYS)
     Route: 048
     Dates: start: 2017
  2. IBRANCE [Suspect]
     Active Substance: PALBOCICLIB
     Indication: BREAST NEOPLASM
     Dosage: 100 MG, CYCLIC(1 PO DAILY X 21 DAYS AND OFF FOR 7 DAYS)
     Route: 048
     Dates: start: 20170911, end: 2017

REACTIONS (1)
  - Neutropenia [Recovered/Resolved]
